FAERS Safety Report 14297843 (Version 3)
Quarter: 2018Q1

REPORT INFORMATION
  Report Type: Spontaneous
  Country: TR (occurrence: TR)
  Receive Date: 20171218
  Receipt Date: 20180321
  Transmission Date: 20180509
  Serious: Yes (Life-Threatening)
  Sender: FDA-Public Use
  Company Number: TR-PFIZER INC-2017536672

PATIENT
  Age: 90 Year
  Sex: Female

DRUGS (1)
  1. TIGECYCLINE. [Suspect]
     Active Substance: TIGECYCLINE
     Indication: ANTIBIOTIC THERAPY
     Dosage: UNK

REACTIONS (1)
  - Hypofibrinogenaemia [Recovering/Resolving]
